FAERS Safety Report 5163278-5 (Version None)
Quarter: 2006Q4

REPORT INFORMATION
  Report Type: 
  Country: None (occurrence: None)
  Receive Date: 20061204
  Receipt Date: 20060525
  Transmission Date: 20070319
  Serious: Yes (Death, Hospitalization, Disabling)
  Sender: FDA-Public Use
  Company Number: PHEH2006US06927

PATIENT
  Age: 84 Year
  Sex: Female

DRUGS (6)
  1. LIPITOR [Concomitant]
     Indication: HYPERLIPIDAEMIA
     Dosage: 10 MG, QD
     Route: 048
     Dates: start: 20040201, end: 20060319
  2. VISTARIL [Concomitant]
     Indication: HYPERSENSITIVITY
     Dosage: 5 MG, QD
     Route: 048
     Dates: end: 20060317
  3. COUMADIN [Concomitant]
     Indication: PULMONARY EMBOLISM
     Dosage: 5 MG, QD
     Route: 048
     Dates: start: 20040901, end: 20060322
  4. VERAPAMIL [Suspect]
     Dosage: UNK
  5. BETA BLOCKING AGENTS [Suspect]
     Dosage: UNK
  6. DIOVAN [Suspect]
     Indication: HYPERTENSION
     Dosage: UNK
     Route: 048
     Dates: start: 20040219, end: 20060319

REACTIONS (10)
  - ATELECTASIS [None]
  - ATRIOVENTRICULAR BLOCK [None]
  - BRONCHITIS [None]
  - CHEST X-RAY ABNORMAL [None]
  - COUGH [None]
  - DEHYDRATION [None]
  - HYPOTENSION [None]
  - MYOCARDIAL INFARCTION [None]
  - NAUSEA [None]
  - VOMITING [None]
